FAERS Safety Report 21216921 (Version 1)
Quarter: 2022Q3

REPORT INFORMATION
  Report Type: Spontaneous
  Country: US (occurrence: US)
  Receive Date: 20220816
  Receipt Date: 20220816
  Transmission Date: 20221027
  Serious: Yes (Other)
  Sender: FDA-Public Use
  Company Number: US-Vifor Pharma-VIT-2022-05609

PATIENT
  Sex: Male

DRUGS (2)
  1. VELPHORO [Interacting]
     Active Substance: SUCROFERRIC OXYHYDROXIDE
     Indication: Product used for unknown indication
     Route: 048
  2. JULUCA [Interacting]
     Active Substance: DOLUTEGRAVIR SODIUM\RILPIVIRINE HYDROCHLORIDE
     Indication: HIV infection

REACTIONS (4)
  - Blood HIV RNA increased [Unknown]
  - CD4 lymphocytes abnormal [Unknown]
  - Drug interaction [Unknown]
  - Product prescribing error [Unknown]
